FAERS Safety Report 7082638-9 (Version None)
Quarter: 2010Q4

REPORT INFORMATION
  Report Type: 
  Country: None (occurrence: None)
  Receive Date: 20101026
  Receipt Date: 20101008
  Transmission Date: 20110411
  Serious: Yes (Hospitalization, Other)
  Sender: FDA-Public Use
  Company Number: 20100493

PATIENT
  Age: 78 Year
  Sex: Female

DRUGS (1)
  1. VENOFER [Suspect]
     Indication: MICROCYTIC ANAEMIA
     Dosage: SUBCUTANEOUS
     Route: 058
     Dates: start: 20100121, end: 20100121

REACTIONS (2)
  - INCORRECT ROUTE OF DRUG ADMINISTRATION [None]
  - SKIN DISCOLOURATION [None]
